FAERS Safety Report 8165759-9 (Version None)
Quarter: 2012Q1

REPORT INFORMATION
  Report Type: 
  Country: None (occurrence: None)
  Receive Date: 20120227
  Receipt Date: 20110207
  Transmission Date: 20120608
  Serious: No
  Sender: FDA-Public Use
  Company Number: US-MYLANLABS-2011S1001286

PATIENT
  Age: 14 Year
  Sex: Male
  Weight: 66.3 kg

DRUGS (2)
  1. AMNESTEEM [Suspect]
     Indication: ACNE
     Route: 048
     Dates: start: 20100616, end: 20100719
  2. AMNESTEEM [Suspect]
     Route: 048
     Dates: start: 20101005

REACTIONS (3)
  - BACK PAIN [None]
  - EPISTAXIS [None]
  - MUSCULOSKELETAL PAIN [None]
